FAERS Safety Report 23640182 (Version 1)
Quarter: 2024Q1

REPORT INFORMATION
  Report Type: Report from Study
  Country: US (occurrence: US)
  Receive Date: 20240317
  Receipt Date: 20240317
  Transmission Date: 20240410
  Serious: No
  Sender: FDA-Public Use
  Company Number: US-ACADIA PHARMACEUTICALS INC.-ACA-2024-PIM-000868

PATIENT
  Sex: Male

DRUGS (16)
  1. NUPLAZID [Suspect]
     Active Substance: PIMAVANSERIN TARTRATE
     Indication: Parkinson^s disease
     Dosage: 34 MILLIGRAM, QD
     Route: 048
     Dates: start: 20221101
  2. AMLODIPINE [Concomitant]
     Active Substance: AMLODIPINE BESYLATE
  3. ATORVASTATIN [Concomitant]
     Active Substance: ATORVASTATIN
  4. CALCITRIOL [Concomitant]
     Active Substance: CALCITRIOL
  5. CLOPIDOGREL [Concomitant]
     Active Substance: CLOPIDOGREL BISULFATE
  6. DONEPEZIL [Concomitant]
     Active Substance: DONEPEZIL
  7. DOXAZOSIN [Concomitant]
     Active Substance: DOXAZOSIN MESYLATE
  8. FENOFIBRATE [Concomitant]
     Active Substance: FENOFIBRATE
  9. GABAPENTIN [Concomitant]
     Active Substance: GABAPENTIN
  10. LEVOCETIRIZINE [Concomitant]
     Active Substance: LEVOCETIRIZINE
  11. LOSARTAN [Concomitant]
     Active Substance: LOSARTAN
  12. METHOCARBAMOL [Concomitant]
     Active Substance: METHOCARBAMOL
  13. METOPROLOL [Concomitant]
     Active Substance: METOPROLOL
  14. PANTOPRAZOLE [Concomitant]
     Active Substance: PANTOPRAZOLE
  15. QUETIAPINE [Concomitant]
     Active Substance: QUETIAPINE
  16. TRAMADOL [Concomitant]
     Active Substance: TRAMADOL\TRAMADOL HYDROCHLORIDE

REACTIONS (3)
  - Neoplasm progression [Recovered/Resolved]
  - Tumour excision [Recovered/Resolved]
  - Radiotherapy [Recovered/Resolved]
